FAERS Safety Report 8922417 (Version 1)
Quarter: 2012Q4

REPORT INFORMATION
  Report Type: 
  Country: US (occurrence: US)
  Receive Date: 20121123
  Receipt Date: 20121123
  Transmission Date: 20130627
  Serious: No
  Sender: FDA-Public Use
  Company Number: US-PFIZER INC-2012291404

PATIENT
  Age: 55 Year

DRUGS (3)
  1. GABAPENTIN [Suspect]
     Dosage: UNK
  2. CARBAMAZEPINE [Suspect]
     Dosage: UNK
  3. CYMBALTA [Suspect]
     Dosage: UNK

REACTIONS (1)
  - Drug ineffective [Unknown]
